FAERS Safety Report 21700729 (Version 1)
Quarter: 2022Q4

REPORT INFORMATION
  Report Type: Spontaneous
  Country: US (occurrence: US)
  Receive Date: 20221208
  Receipt Date: 20221208
  Transmission Date: 20230112
  Serious: Yes (Other)
  Sender: FDA-Public Use
  Company Number: US-NOVOPROD-986651

PATIENT
  Age: 82 Year
  Sex: Female

DRUGS (1)
  1. LEVEMIR [Suspect]
     Active Substance: INSULIN DETEMIR
     Indication: Type 2 diabetes mellitus
     Dosage: 66 IU, QD (56 IU MORNING/10 IU EVENING)
     Route: 058

REACTIONS (2)
  - Cataract operation [Unknown]
  - Cataract operation [Unknown]

NARRATIVE: CASE EVENT DATE: 20220913
